FAERS Safety Report 4732877-4 (Version None)
Quarter: 2005Q3

REPORT INFORMATION
  Report Type: 
  Country: None (occurrence: None)
  Receive Date: 20050803
  Receipt Date: 20050421
  Transmission Date: 20060218
  Serious: No
  Sender: FDA-Public Use
  Company Number: US-GLAXOSMITHKLINE-A0555218A

PATIENT

DRUGS (6)
  1. AVANDAMET [Suspect]
     Route: 048
     Dates: start: 20041101
  2. LIPITOR [Concomitant]
  3. NORVASC [Concomitant]
  4. HYDROCHLOROTHIAZIDE [Concomitant]
  5. ESTRADIOL [Concomitant]
  6. ZOLOFT [Concomitant]

REACTIONS (1)
  - HYPOTRICHOSIS [None]
